FAERS Safety Report 21149674 (Version 1)
Quarter: 2022Q3

REPORT INFORMATION
  Report Type: Spontaneous
  Country: CN (occurrence: CN)
  Receive Date: 20220729
  Receipt Date: 20220729
  Transmission Date: 20221027
  Serious: Yes (Other)
  Sender: FDA-Public Use
  Company Number: CN-009507513-2207CHN007996

PATIENT
  Age: 56 Year
  Sex: Male
  Weight: 62 kg

DRUGS (5)
  1. KEYTRUDA [Suspect]
     Active Substance: PEMBROLIZUMAB
     Indication: Hepatic cancer
     Dosage: 200 MILLIGRAM (MG) 1 TIME IN ONE DAY (ONCE)
     Route: 041
     Dates: start: 20220416, end: 20220416
  2. PACLITAXEL [Suspect]
     Active Substance: PACLITAXEL
     Indication: Hepatic cancer
     Dosage: 0.4 GRAM (G) 1 TIME IN ONE DAY (ONCE)
     Route: 041
     Dates: start: 20220416, end: 20220416
  3. CARBOPLATIN [Suspect]
     Active Substance: CARBOPLATIN
     Indication: Hepatic cancer
     Dosage: 0.4 GRAM (G) 1 TIME IN ONE DAY (ONCE)
     Route: 041
     Dates: start: 20220416, end: 20220416
  4. SODIUM CHLORIDE [Concomitant]
     Active Substance: SODIUM CHLORIDE
     Indication: Medication dilution
     Dosage: 100 MILLILITER (ML), 1 TIME IN ONE DAY (QD)
     Route: 041
     Dates: start: 20220416, end: 20220416
  5. DEXTROSE [Concomitant]
     Active Substance: DEXTROSE
     Indication: Medication dilution
     Dosage: 500 MILLILITER (ML), 1 TIME IN ONE DAY (QD)
     Route: 041
     Dates: start: 20220416, end: 20220416

REACTIONS (3)
  - Neutrophil count decreased [Recovered/Resolved]
  - White blood cell count decreased [Recovered/Resolved]
  - Product use in unapproved indication [Unknown]

NARRATIVE: CASE EVENT DATE: 20220416
